FAERS Safety Report 11562339 (Version 1)
Quarter: 2015Q3

REPORT INFORMATION
  Report Type: Spontaneous
  Country: US (occurrence: US)
  Receive Date: 20150928
  Receipt Date: 20150928
  Transmission Date: 20151125
  Serious: Yes (Other)
  Sender: FDA-Public Use
  Company Number: US-ELI_LILLY_AND_COMPANY-US201509006458

PATIENT
  Sex: Male

DRUGS (1)
  1. HUMALOG MIX75/25 [Suspect]
     Active Substance: INSULIN LISPRO
     Indication: TYPE 2 DIABETES MELLITUS
     Route: 065

REACTIONS (7)
  - Cerebrovascular accident [Unknown]
  - Dyskinesia [Unknown]
  - Blood glucose abnormal [Unknown]
  - Narcolepsy [Unknown]
  - Musculoskeletal pain [Unknown]
  - Abasia [Unknown]
  - Drug effect decreased [Unknown]
